FAERS Safety Report 23153278 (Version 1)
Quarter: 2023Q4

REPORT INFORMATION
  Report Type: Spontaneous
  Country: US (occurrence: US)
  Receive Date: 20231107
  Receipt Date: 20231107
  Transmission Date: 20240110
  Serious: No
  Sender: FDA-Public Use
  Company Number: US-OPELLA-2023OHG011686

PATIENT
  Sex: Male

DRUGS (1)
  1. ARTHRITIS HOT [Suspect]
     Active Substance: MENTHOL\METHYL SALICYLATE

REACTIONS (8)
  - Headache [Recovered/Resolved]
  - Musculoskeletal discomfort [Unknown]
  - Application site pain [Unknown]
  - Insomnia [Unknown]
  - Blister [Unknown]
  - Scab [Unknown]
  - Skin exfoliation [Unknown]
  - Rash [Unknown]
